FAERS Safety Report 6086151-7 (Version None)
Quarter: 2009Q1

REPORT INFORMATION
  Report Type: 
  Country: None (occurrence: None)
  Receive Date: 20090220
  Receipt Date: 20090212
  Transmission Date: 20090719
  Serious: Yes (Death)
  Sender: FDA-Public Use
  Company Number: US-PURDUE-USA_2009_0036585

PATIENT
  Age: 35 Year
  Sex: Female

DRUGS (4)
  1. OXYCONTIN [Suspect]
     Indication: PAIN
     Dosage: 80 MG, Q12H
     Route: 048
     Dates: start: 20081029
  2. SOMA [Concomitant]
     Indication: PAIN
     Dosage: 350 MG, NOCTE
     Route: 048
  3. NORCO [Concomitant]
     Indication: PAIN
     Dosage: UNK MG, TID
     Route: 048
  4. METHADONE HCL [Suspect]
     Indication: DRUG ABUSE
     Dosage: UNK MG, UNK

REACTIONS (1)
  - ACCIDENTAL OVERDOSE [None]
